FAERS Safety Report 15366221 (Version 1)
Quarter: 2018Q3

REPORT INFORMATION
  Report Type: Spontaneous
  Country: US (occurrence: US)
  Receive Date: 20180831
  Receipt Date: 20180831
  Transmission Date: 20181010
  Serious: Yes (Disabling, Other)
  Sender: FDA-Public Use
  Company Number: None

PATIENT
  Age: 75 Year
  Sex: Female
  Weight: 55.79 kg

DRUGS (4)
  1. LOW DOSE CLARITIN OTC [Concomitant]
  2. CLINDAMYCIN HCL 300MG CAPSULE [Suspect]
     Active Substance: CLINDAMYCIN HYDROCHLORIDE
     Indication: INFECTION PROPHYLAXIS
     Dosage: ?          QUANTITY:28 DF DOSAGE FORM;?
     Route: 048
     Dates: start: 20180628, end: 20180705
  3. MULTIVITAMINS [Concomitant]
     Active Substance: VITAMINS
  4. METRONIDAZOLE. [Concomitant]
     Active Substance: METRONIDAZOLE

REACTIONS (5)
  - Diarrhoea [None]
  - Pyrexia [None]
  - Muscle spasms [None]
  - Weight decreased [None]
  - Chills [None]

NARRATIVE: CASE EVENT DATE: 20180714
